FAERS Safety Report 15396734 (Version 1)
Quarter: 2018Q3

REPORT INFORMATION
  Report Type: Spontaneous
  Country: US (occurrence: US)
  Receive Date: 20180918
  Receipt Date: 20180918
  Transmission Date: 20181010
  Serious: Yes (Hospitalization, Other)
  Sender: FDA-Public Use
  Company Number: US-GLENMARK PHARMACEUTICALS-2014GMK009494

PATIENT
  Age: 7 Year
  Sex: Female

DRUGS (3)
  1. CYPROHEPTADINE. [Concomitant]
     Active Substance: CYPROHEPTADINE
     Indication: PRODUCT USED FOR UNKNOWN INDICATION
     Dosage: 5 ML, HS  (AT BEDTIME AS NECESSARY)
     Route: 065
  2. TOPIRAMATE. [Suspect]
     Active Substance: TOPIRAMATE
     Indication: PARTIAL SEIZURES
     Dosage: 25 MG, OD (LAST DOSE 20 HOURS PRIOR TO PRESENTATION, AT BEDTIME)
     Route: 065
  3. TOPIRAMATE. [Suspect]
     Active Substance: TOPIRAMATE
     Indication: HEADACHE

REACTIONS (4)
  - Toxicity to various agents [Recovered/Resolved]
  - Angle closure glaucoma [Recovered/Resolved]
  - Product use in unapproved indication [Unknown]
  - Myopia [Recovered/Resolved]
